FAERS Safety Report 9241989 (Version 2)
Quarter: 2013Q2

REPORT INFORMATION
  Report Type: Report from Study
  Country: US (occurrence: US)
  Receive Date: 20130419
  Receipt Date: 20130530
  Transmission Date: 20140414
  Serious: Yes (Other)
  Sender: FDA-Public Use
  Company Number: US-ABBOTT-13P-163-1076538-00

PATIENT
  Sex: Female
  Weight: 70.2 kg

DRUGS (5)
  1. HUMIRA [Suspect]
     Indication: CROHN^S DISEASE
     Dates: start: 20121030
  2. CLONODINE [Concomitant]
  3. AZATHIOPRINE [Concomitant]
  4. GABAPENTIN [Concomitant]
     Dosage: UP TO 5 TIMES A DAY
  5. CONCERTA ER [Concomitant]
     Indication: PRODUCT USED FOR UNKNOWN INDICATION

REACTIONS (5)
  - Ovarian cyst [Unknown]
  - Dysfunctional uterine bleeding [Unknown]
  - Dysmenorrhoea [Unknown]
  - Abdominal adhesions [Unknown]
  - Post procedural infection [Unknown]
